FAERS Safety Report 5722486-2 (Version None)
Quarter: 2008Q2

REPORT INFORMATION
  Report Type: 
  Country: None (occurrence: None)
  Receive Date: 20080429
  Receipt Date: 20070719
  Transmission Date: 20081010
  Serious: No
  Sender: FDA-Public Use
  Company Number: US-ASTRAZENECA-2007UW17137

PATIENT
  Age: 38 Year
  Sex: Male
  Weight: 59.9 kg

DRUGS (5)
  1. NEXIUM [Suspect]
     Indication: GASTROINTESTINAL DISORDER
     Route: 048
     Dates: start: 20070601
  2. COLONOSCOPY PREP [Concomitant]
  3. ZIAGEN [Concomitant]
  4. VIRIAD [Concomitant]
  5. VIRAMUNE [Concomitant]

REACTIONS (2)
  - BLOOD CALCIUM DECREASED [None]
  - BLOOD ELECTROLYTES ABNORMAL [None]
